FAERS Safety Report 6175879-6 (Version None)
Quarter: 2009Q2

REPORT INFORMATION
  Report Type: 
  Country: None (occurrence: None)
  Receive Date: 20090501
  Receipt Date: 20080527
  Transmission Date: 20091009
  Serious: No
  Sender: FDA-Public Use
  Company Number: US-TYCO HEALTHCARE/MALLINCKRODT-T200800909

PATIENT

DRUGS (6)
  1. METHADONE DISPERSIBLE (ORANGE FLAVORED) [Suspect]
     Indication: BACK PAIN
     Dosage: 40 MG, UNK
     Dates: start: 20070101, end: 20080101
  2. METHADOSE [Suspect]
     Indication: BACK PAIN
     Dosage: 10 MG TABLETS, 4 TABLETS EVERY 6-8 HOURS
     Dates: start: 20080101
  3. ROXICODONE [Concomitant]
     Indication: BREAKTHROUGH PAIN
     Dosage: 30 MG TABLETS, 5-6 TABLETS A DAY
     Route: 048
  4. VALIUM [Concomitant]
     Indication: MUSCLE SPASMS
     Dosage: 10 MG, PRN
     Route: 048
  5. OXYFAST [Concomitant]
     Indication: BREAKTHROUGH PAIN
     Dosage: UNK, 4-5 TIMES A DAY
     Route: 048
  6. ANTIDEPRESSANTS [Concomitant]
     Indication: DEPRESSION
     Dates: start: 20080101, end: 20080101

REACTIONS (10)
  - ANOREXIA [None]
  - ASTHENIA [None]
  - CONSTIPATION [None]
  - DEPRESSION [None]
  - DIARRHOEA [None]
  - DYSURIA [None]
  - HYPERSOMNIA [None]
  - LOSS OF LIBIDO [None]
  - SUICIDAL IDEATION [None]
  - WEIGHT DECREASED [None]
